FAERS Safety Report 15667285 (Version 1)
Quarter: 2018Q4

REPORT INFORMATION
  Report Type: Spontaneous
  Country: US (occurrence: US)
  Receive Date: 20181128
  Receipt Date: 20181128
  Transmission Date: 20190205
  Serious: No
  Sender: FDA-Public Use
  Company Number: US-ROCHE-2126619

PATIENT
  Sex: Female
  Weight: 79.45 kg

DRUGS (1)
  1. OCREVUS [Suspect]
     Active Substance: OCRELIZUMAB
     Indication: MULTIPLE SCLEROSIS
     Dosage: ON 16/MAY/2018, SHE WAS SCHEDULED TO RECEIVED THE THIRD OCRELIZUMAB INFUSION OF 600 MG.
     Route: 042
     Dates: start: 201711

REACTIONS (4)
  - Nervousness [Unknown]
  - Anxiety [Unknown]
  - Binge eating [Unknown]
  - Depressed mood [Unknown]
